FAERS Safety Report 20975998 (Version 1)
Quarter: 2022Q2

REPORT INFORMATION
  Report Type: Other
  Country: US (occurrence: US)
  Receive Date: 20220617
  Receipt Date: 20220617
  Transmission Date: 20220720
  Serious: Yes (Hospitalization, Other)
  Sender: FDA-Public Use
  Company Number: US-MAYNE PHARMA-2022MYN000805

PATIENT

DRUGS (1)
  1. CLOZAPINE [Suspect]
     Active Substance: CLOZAPINE
     Indication: Product used for unknown indication
     Dosage: 350 MG
     Route: 065
     Dates: start: 20220117

REACTIONS (3)
  - Circulatory collapse [Not Recovered/Not Resolved]
  - Seizure [Unknown]
  - Renal failure [Unknown]

NARRATIVE: CASE EVENT DATE: 20220323
